FAERS Safety Report 18582656 (Version 1)
Quarter: 2020Q4

REPORT INFORMATION
  Report Type: Spontaneous
  Country: ES (occurrence: ES)
  Receive Date: 20201205
  Receipt Date: 20201205
  Transmission Date: 20210114
  Serious: Yes (Hospitalization, Other)
  Sender: FDA-Public Use
  Company Number: ES-ACCORD-210104

PATIENT
  Age: 70 Year
  Sex: Female
  Weight: 70 kg

DRUGS (3)
  1. SIMVASTATIN. [Suspect]
     Active Substance: SIMVASTATIN
     Indication: PRODUCT USED FOR UNKNOWN INDICATION
     Route: 048
     Dates: start: 2019
  2. IBRANCE [Interacting]
     Active Substance: PALBOCICLIB
     Indication: HORMONE RECEPTOR POSITIVE BREAST CANCER
     Route: 048
     Dates: start: 20190117, end: 20190131
  3. AMIODARONE [Interacting]
     Active Substance: AMIODARONE
     Indication: PRODUCT USED FOR UNKNOWN INDICATION
     Route: 048
     Dates: start: 20150211

REACTIONS (3)
  - Drug interaction [Unknown]
  - Hepatitis [Recovered/Resolved]
  - Rhabdomyolysis [Recovered/Resolved]

NARRATIVE: CASE EVENT DATE: 20190220
